FAERS Safety Report 11839664 (Version 2)
Quarter: 2016Q4

REPORT INFORMATION
  Report Type: Spontaneous
  Country: US (occurrence: US)
  Receive Date: 20151216
  Receipt Date: 20161216
  Transmission Date: 20170206
  Serious: No
  Sender: FDA-Public Use
  Company Number: US-PFIZER INC-2015393842

PATIENT
  Age: 71 Year
  Sex: Male

DRUGS (1)
  1. TRIAZOLAM. [Suspect]
     Active Substance: TRIAZOLAM
     Dosage: UNK

REACTIONS (2)
  - Drug hypersensitivity [Unknown]
  - Fall [Unknown]
